FAERS Safety Report 8588662-9 (Version None)
Quarter: 2012Q3

REPORT INFORMATION
  Report Type: 
  Country: None (occurrence: None)
  Receive Date: 20120803
  Receipt Date: 20120803
  Transmission Date: 20120928
  Serious: No
  Sender: FDA-Public Use
  Company Number: None

PATIENT
  Age: 60 Year
  Sex: Male
  Weight: 105.5 kg

DRUGS (2)
  1. RIBAVIRIN [Suspect]
     Dosage: 600 MG EVERY DAY PO
     Route: 048
     Dates: start: 20111110
  2. BOCEPREVIR [Suspect]
     Dosage: 800 MG TID PO
     Route: 048
     Dates: start: 20111208

REACTIONS (1)
  - ANAEMIA [None]
